FAERS Safety Report 12660391 (Version 2)
Quarter: 2016Q3

REPORT INFORMATION
  Report Type: Spontaneous
  Country: US (occurrence: US)
  Receive Date: 20160817
  Receipt Date: 20160912
  Transmission Date: 20161109
  Serious: Yes (Hospitalization)
  Sender: FDA-Public Use
  Company Number: US-UNITED THERAPEUTICS-UNT-2016-011668

PATIENT
  Age: 53 Year
  Sex: Female
  Weight: 74.83 kg

DRUGS (4)
  1. REMODULIN [Suspect]
     Active Substance: TREPROSTINIL
     Indication: PULMONARY HYPERTENSION
     Dosage: 0.094 ?G/KG, CONTINUING
     Route: 058
     Dates: start: 20130604
  2. REVATIO [Concomitant]
     Active Substance: SILDENAFIL CITRATE
     Indication: PRODUCT USED FOR UNKNOWN INDICATION
  3. REMODULIN [Suspect]
     Active Substance: TREPROSTINIL
     Dosage: 0.094 ?G/KG, CONTINUING
     Route: 041
  4. REMODULIN [Suspect]
     Active Substance: TREPROSTINIL
     Dosage: 0.103 ?G/KG, CONTINUING
     Route: 041
     Dates: start: 20160829

REACTIONS (5)
  - Renal failure [Unknown]
  - Dyspnoea [Unknown]
  - Cardiac failure [Unknown]
  - Pulmonary arterial hypertension [Unknown]
  - Peritoneal dialysis [Unknown]

NARRATIVE: CASE EVENT DATE: 20160706
